FAERS Safety Report 7253772-5 (Version None)
Quarter: 2011Q1

REPORT INFORMATION
  Report Type: 
  Country: None (occurrence: None)
  Receive Date: 20110129
  Receipt Date: 20100203
  Transmission Date: 20110831
  Serious: No
  Sender: FDA-Public Use
  Company Number: US-ABBOTT-10P-163-0624391-00

PATIENT
  Age: 62 Year
  Sex: Male

DRUGS (8)
  1. QUINAPRIL [Concomitant]
     Indication: PRODUCT USED FOR UNKNOWN INDICATION
     Dosage: 20/12.5 HCTZ
  2. FOLIC ACID [Concomitant]
     Indication: PRODUCT USED FOR UNKNOWN INDICATION
  3. K [Concomitant]
     Indication: PRODUCT USED FOR UNKNOWN INDICATION
  4. PROZAC [Concomitant]
     Indication: PRODUCT USED FOR UNKNOWN INDICATION
     Dosage: RECENTLY DOUBLED
  5. HUMIRA [Suspect]
     Indication: CROHN'S DISEASE
     Dates: start: 20091019
  6. PENTASA [Concomitant]
     Indication: PRODUCT USED FOR UNKNOWN INDICATION
  7. VITAMIN B-12 [Concomitant]
     Indication: PRODUCT USED FOR UNKNOWN INDICATION
  8. METFORMIN [Concomitant]
     Indication: PRODUCT USED FOR UNKNOWN INDICATION
     Dates: start: 20081201

REACTIONS (9)
  - DEPRESSION [None]
  - ASTHENIA [None]
  - NEUTROPHIL COUNT INCREASED [None]
  - DECREASED INTEREST [None]
  - CONFUSIONAL STATE [None]
  - FLUSHING [None]
  - VITAMIN D DEFICIENCY [None]
  - FATIGUE [None]
  - COLD SWEAT [None]
